FAERS Safety Report 17845719 (Version 1)
Quarter: 2020Q2

REPORT INFORMATION
  Report Type: Spontaneous
  Country: US (occurrence: US)
  Receive Date: 20200529
  Receipt Date: 20200529
  Transmission Date: 20200714
  Serious: Yes (Other)
  Sender: FDA-Public Use
  Company Number: None

PATIENT
  Age: 32 Year
  Sex: Male
  Weight: 55.8 kg

DRUGS (1)
  1. DIVALPROEX ER 500MG [Suspect]
     Active Substance: DIVALPROEX SODIUM
     Indication: FRONTAL LOBE EPILEPSY
     Dates: start: 20150114, end: 20150831

REACTIONS (1)
  - Seizure [None]

NARRATIVE: CASE EVENT DATE: 20150114
